FAERS Safety Report 4348732-8 (Version None)
Quarter: 2004Q2

REPORT INFORMATION
  Report Type: 
  Country: None (occurrence: None)
  Receive Date: 20040427
  Receipt Date: 20040421
  Transmission Date: 20050107
  Serious: Yes (Death, Life-Threatening)
  Sender: FDA-Public Use
  Company Number: US-MERCK-0404USA01982

PATIENT

DRUGS (3)
  1. AMBISOME [Concomitant]
     Route: 065
  2. CANCIDAS [Suspect]
     Indication: SYSTEMIC CANDIDA
     Route: 051
  3. VORICONAZOLE [Concomitant]
     Route: 065

REACTIONS (2)
  - DEATH [None]
  - DRUG INEFFECTIVE [None]
